FAERS Safety Report 7281364-0 (Version None)
Quarter: 2011Q1

REPORT INFORMATION
  Report Type: 
  Country: None (occurrence: None)
  Receive Date: 20110208
  Receipt Date: 20110119
  Transmission Date: 20110831
  Serious: No
  Sender: FDA-Public Use
  Company Number: US-B.I. PHARMACEUTICALS,INC./RIDGEFIELD-2011-BP-02008BP

PATIENT
  Age: 69 Year
  Sex: Male

DRUGS (7)
  1. ZETIA [Concomitant]
     Indication: BLOOD CHOLESTEROL INCREASED
     Dosage: 10 MG
  2. BYETTA [Concomitant]
     Indication: DIABETES MELLITUS
     Dosage: INJ
  3. LANOXIN [Concomitant]
     Indication: ATRIAL FIBRILLATION
     Dosage: 0.25
     Route: 048
  4. PRADAXA [Suspect]
     Indication: ATRIAL FIBRILLATION
     Dosage: 300 MG
     Route: 048
     Dates: start: 20110101
  5. DILTIAZEM [Concomitant]
     Indication: DIABETES MELLITUS
     Dosage: 180 MG
  6. LIPITOR [Concomitant]
     Indication: BLOOD CHOLESTEROL INCREASED
     Dosage: 80 MG
  7. ALTACE [Concomitant]
     Indication: HYPERTENSION
     Dosage: 10 MG

REACTIONS (3)
  - BLOOD GLUCOSE INCREASED [None]
  - CHROMATURIA [None]
  - ABDOMINAL DISCOMFORT [None]
